FAERS Safety Report 25503592 (Version 1)
Quarter: 2025Q3

REPORT INFORMATION
  Report Type: Spontaneous
  Country: EU (occurrence: EU)
  Receive Date: 20250702
  Receipt Date: 20250702
  Transmission Date: 20251020
  Serious: Yes (Hospitalization)
  Sender: BIOGEN
  Company Number: EU-BIOGEN-2025BI01315558

PATIENT
  Sex: Female

DRUGS (1)
  1. TECFIDERA [Suspect]
     Active Substance: DIMETHYL FUMARATE
     Indication: Multiple sclerosis
     Dosage: MAINTENANCE DOSE
     Route: 050
     Dates: start: 202403

REACTIONS (6)
  - Conjunctival disorder [Unknown]
  - Paraesthesia [Unknown]
  - Vitreous floaters [Unknown]
  - Photopsia [Unknown]
  - Attention deficit hyperactivity disorder [Unknown]
  - Flushing [Unknown]
